FAERS Safety Report 13960519 (Version 1)
Quarter: 2017Q3

REPORT INFORMATION
  Report Type: Spontaneous
  Country: US (occurrence: None)
  Receive Date: 20170912
  Receipt Date: 20170912
  Transmission Date: 20171128
  Serious: No
  Sender: FDA-Public Use
  Company Number: None

PATIENT
  Age: 82 Year
  Sex: Female
  Weight: 64.4 kg

DRUGS (2)
  1. CIPROFLOXACIN. [Suspect]
     Active Substance: CIPROFLOXACIN
     Indication: URINARY TRACT INFECTION
     Route: 048
     Dates: start: 20160818, end: 20160823
  2. CARVEDILOL. [Suspect]
     Active Substance: CARVEDILOL
     Indication: CARDIAC FAILURE CONGESTIVE
     Route: 048
     Dates: start: 20160504

REACTIONS (9)
  - Atrioventricular block first degree [None]
  - Blood potassium decreased [None]
  - Sinus arrhythmia [None]
  - Electrocardiogram QT prolonged [None]
  - Blood chloride decreased [None]
  - Blood sodium decreased [None]
  - Nausea [None]
  - Vomiting [None]
  - Ventricular extrasystoles [None]

NARRATIVE: CASE EVENT DATE: 20160901
